FAERS Safety Report 18639713 (Version 1)
Quarter: 2020Q4

REPORT INFORMATION
  Report Type: Spontaneous
  Country: US (occurrence: US)
  Receive Date: 20201220
  Receipt Date: 20201220
  Transmission Date: 20210114
  Serious: No
  Sender: FDA-Public Use
  Company Number: US-ELI_LILLY_AND_COMPANY-US202012009324

PATIENT
  Age: 57 Year
  Sex: Male

DRUGS (2)
  1. CIALIS [Suspect]
     Active Substance: TADALAFIL
     Indication: ERECTILE DYSFUNCTION
     Dosage: 10 MG, PRN
     Route: 048
  2. CIALIS [Suspect]
     Active Substance: TADALAFIL
     Dosage: UNK, UNKNOWN (SPLITTING THE 10MG TABLETS TO TAKE HALF A DOSE)
     Route: 048

REACTIONS (3)
  - Diarrhoea [Not Recovered/Not Resolved]
  - Disturbance in sexual arousal [Not Recovered/Not Resolved]
  - Wrong technique in product usage process [Unknown]
